FAERS Safety Report 10566523 (Version 3)
Quarter: 2015Q1

REPORT INFORMATION
  Report Type: Spontaneous
  Country: US (occurrence: US)
  Receive Date: 20141105
  Receipt Date: 20150105
  Transmission Date: 20150720
  Serious: Yes (Hospitalization, Other)
  Sender: FDA-Public Use
  Company Number: US-PFIZER INC-2014301265

PATIENT
  Age: 59 Year
  Sex: Male
  Weight: 95.24 kg

DRUGS (2)
  1. ADVIL [Concomitant]
     Active Substance: IBUPROFEN
     Dosage: UNK
     Dates: start: 20141016, end: 20141018
  2. ANBESOL MAXIMUM STRENGTH [Suspect]
     Active Substance: BENZOCAINE
     Indication: TOOTHACHE
     Dosage: UNK, 4X/DAY
     Dates: start: 20141016, end: 20141019

REACTIONS (7)
  - VIIth nerve paralysis [Not Recovered/Not Resolved]
  - Facial pain [Not Recovered/Not Resolved]
  - Infection [Recovered/Resolved]
  - Neuralgia [Not Recovered/Not Resolved]
  - Hypoaesthesia [Not Recovered/Not Resolved]
  - Drug ineffective [Not Recovered/Not Resolved]
  - Vth nerve injury [Not Recovered/Not Resolved]

NARRATIVE: CASE EVENT DATE: 20141016
